FAERS Safety Report 4644673-7 (Version None)
Quarter: 2005Q2

REPORT INFORMATION
  Report Type: 
  Country: None (occurrence: None)
  Receive Date: 20050425
  Receipt Date: 20050425
  Transmission Date: 20051028
  Serious: Yes (Hospitalization)
  Sender: FDA-Public Use
  Company Number: None

PATIENT
  Age: 71 Year
  Sex: Male
  Weight: 60 kg

DRUGS (1)
  1. ALDESLEUKIN    22 MILLION UNITS    CHIRON CORP [Suspect]
     Indication: METASTATIC RENAL CELL CARCINOMA
     Dosage: 36 MILLION U    ONE TIME   INTRAVENOU
     Route: 042
     Dates: start: 20050314, end: 20050321

REACTIONS (1)
  - HYPOTENSION [None]
